FAERS Safety Report 8105263-7 (Version None)
Quarter: 2012Q1

REPORT INFORMATION
  Report Type: 
  Country: None (occurrence: None)
  Receive Date: 20120201
  Receipt Date: 20120125
  Transmission Date: 20120608
  Serious: Yes (Hospitalization)
  Sender: FDA-Public Use
  Company Number: US-BAYER-2012-008431

PATIENT
  Age: 69 Year
  Sex: Male

DRUGS (2)
  1. CIPROFLOXACIN [Suspect]
     Indication: URINARY TRACT INFECTION
     Dosage: 500 MG, UNK
     Dates: start: 20111221
  2. CIPROFLOXACIN [Suspect]
     Dosage: 500 MG, UNK
     Dates: start: 20120117

REACTIONS (1)
  - DRUG INEFFECTIVE [None]
